FAERS Safety Report 18424340 (Version 4)
Quarter: 2022Q1

REPORT INFORMATION
  Report Type: Report from Study
  Country: DE (occurrence: None)
  Receive Date: 20201026
  Receipt Date: 20220121
  Transmission Date: 20220424
  Serious: Yes (Hospitalization)
  Sender: FDA-Public Use
  Company Number: DE-ROCHE-2671506

PATIENT
  Age: 68 Year
  Sex: Male
  Weight: 97 kg

DRUGS (10)
  1. ATEZOLIZUMAB [Suspect]
     Active Substance: ATEZOLIZUMAB
     Indication: Oesophageal adenocarcinoma
     Dosage: DATE OF MOST RECENT DOSE AND LAST DOSE OF ATEZOLIZUMAB PRIOR TO AE: 21/AUG/2020 840 MG?DAY 1 Q2W: 84
     Route: 042
  2. FLUOROURACIL [Suspect]
     Active Substance: FLUOROURACIL
     Indication: Oesophageal adenocarcinoma
     Dosage: DATE OF MOST RECENT DOSE OF FLUROURACIL PRIOR TO ADVERSE EVENT: 22/AUG/2020 2600 MG?DAY 1 Q2W: 2600
     Route: 042
  3. LEUCOVORIN [Suspect]
     Active Substance: LEUCOVORIN
     Indication: Oesophageal adenocarcinoma
     Dosage: DATE OF MOST RECENT DOSE PRIOR TO ONSET OF AE: 21/AUG/2020 400 MG?DAY 1 Q2W: 200 MG/M2 IV OVER 1 HOU
     Route: 042
  4. DOCETAXEL [Suspect]
     Active Substance: DOCETAXEL
     Indication: Oesophageal adenocarcinoma
     Dosage: DATE OF MOST RECENT DOSE PRIOR TO AE: 21/AUG/2020 100 MG DAY 1 Q2W: 50 MG/M2 IV OVER 1 HOUR?ON 08/OC
     Route: 042
  5. OXALIPLATIN [Suspect]
     Active Substance: OXALIPLATIN
     Indication: Oesophageal adenocarcinoma
     Dosage: DATE OF MOST RECENT DOSE PRIOR TO AE: 21/AUG/2020 170 MG  DAY 1 Q2W: 85 MG/M 2 IV OVER 2 HOURS??ON 0
     Route: 042
  6. FILGRASTIM [Concomitant]
     Active Substance: FILGRASTIM
     Route: 065
  7. CARVEDILOL [Concomitant]
     Active Substance: CARVEDILOL
  8. SIMVASTATIN [Concomitant]
     Active Substance: SIMVASTATIN
  9. AMOXICILLIN\CLAVULANATE POTASSIUM [Concomitant]
     Active Substance: AMOXICILLIN\CLAVULANATE POTASSIUM
  10. AMLODIPINE [Concomitant]
     Active Substance: AMLODIPINE BESYLATE

REACTIONS (3)
  - Ileus [Not Recovered/Not Resolved]
  - Enteritis [Recovered/Resolved]
  - Neutrophil count decreased [Recovered/Resolved]

NARRATIVE: CASE EVENT DATE: 20200901
